FAERS Safety Report 24738670 (Version 2)
Quarter: 2024Q4

REPORT INFORMATION
  Report Type: Spontaneous
  Country: US (occurrence: US)
  Receive Date: 20241216
  Receipt Date: 20241216
  Transmission Date: 20250115
  Serious: Yes (Other)
  Sender: CSL BEHRING
  Company Number: US-BEH-2024187800

PATIENT
  Age: 77 Year
  Sex: Male
  Weight: 100.7 kg

DRUGS (3)
  1. MIRCERA [Suspect]
     Active Substance: METHOXY POLYETHYLENE GLYCOL-EPOETIN BETA
     Indication: Nephrogenic anaemia
     Dosage: 60 ?G
     Route: 042
     Dates: start: 20241113
  2. MIRCERA [Suspect]
     Active Substance: METHOXY POLYETHYLENE GLYCOL-EPOETIN BETA
     Dosage: 150 ?G EVERY 2 WEEKS
     Route: 040
     Dates: start: 20241127
  3. VENOFER [Suspect]
     Active Substance: IRON SUCROSE
     Dosage: 50 MG (IVP)
     Route: 040

REACTIONS (5)
  - Drug hypersensitivity [Unknown]
  - Restlessness [Unknown]
  - Dyspnoea [Unknown]
  - Oxygen saturation decreased [Unknown]
  - Blood pressure decreased [Unknown]

NARRATIVE: CASE EVENT DATE: 20241127
